FAERS Safety Report 16435158 (Version 1)
Quarter: 2019Q2

REPORT INFORMATION
  Report Type: Report from Study
  Country: US (occurrence: US)
  Receive Date: 20190614
  Receipt Date: 20190614
  Transmission Date: 20190711
  Serious: Yes (Hospitalization)
  Sender: FDA-Public Use
  Company Number: US-ADAMAS PHARMA, LLC-2019ADA00925

PATIENT
  Age: 64 Year
  Sex: Female

DRUGS (6)
  1. GOCOVRI [Suspect]
     Active Substance: AMANTADINE
     Dosage: 274 MG, 1X/DAY, AT BEDTIME
     Route: 048
     Dates: start: 2019, end: 2019
  2. GOCOVRI [Suspect]
     Active Substance: AMANTADINE
     Dosage: 274 MG, 1X/DAY, AT BEDTIME
     Route: 048
     Dates: start: 20190515
  3. GOCOVRI [Suspect]
     Active Substance: AMANTADINE
     Indication: DYSKINESIA
     Dosage: 274 MG, 1X/DAY, AT BEDTIME
     Route: 048
     Dates: start: 20190226, end: 2019
  4. UNSPECIFIED INJECTION [Concomitant]
     Active Substance: UNSPECIFIED INGREDIENT
  5. UNSPECIFIED OTHER PILLS [Concomitant]
  6. UNSPECIFIED LEVODOPA-BASED THERAPY [Concomitant]

REACTIONS (8)
  - Loss of consciousness [Unknown]
  - Haematochezia [Recovered/Resolved]
  - Large intestine anastomosis [Recovering/Resolving]
  - Product dose omission [Recovered/Resolved]
  - Blood urine present [Recovered/Resolved]
  - Constipation [Recovering/Resolving]
  - Intestinal resection [Recovering/Resolving]
  - Influenza [Unknown]

NARRATIVE: CASE EVENT DATE: 2019
